FAERS Safety Report 8598170-7 (Version None)
Quarter: 2012Q3

REPORT INFORMATION
  Report Type: 
  Country: None (occurrence: None)
  Receive Date: 20120816
  Receipt Date: 20120808
  Transmission Date: 20120928
  Serious: Yes (Other)
  Sender: FDA-Public Use
  Company Number: PHHY2012FR070714

PATIENT
  Sex: Male

DRUGS (2)
  1. CLOZAPINE [Suspect]
     Dosage: 400 MG, DAILY
     Route: 048
  2. CLOZAPINE [Suspect]
     Route: 048

REACTIONS (4)
  - POLYCYTHAEMIA [None]
  - MALAISE [None]
  - FATIGUE [None]
  - THROMBOCYTOSIS [None]
